FAERS Safety Report 6867733-9 (Version None)
Quarter: 2010Q3

REPORT INFORMATION
  Report Type: 
  Country: None (occurrence: None)
  Receive Date: 20100721
  Receipt Date: 20100721
  Transmission Date: 20110219
  Serious: Yes (Other)
  Sender: FDA-Public Use
  Company Number: None

PATIENT
  Age: 7 Year
  Sex: Male

DRUGS (4)
  1. BUPROPION [Suspect]
     Indication: ANXIETY DISORDER
     Dosage: 75MG  BID ORAL
     Route: 048
     Dates: start: 20100611
  2. BUPROPION [Suspect]
     Indication: MAJOR DEPRESSION
     Dosage: 75MG  BID ORAL
     Route: 048
     Dates: start: 20100611
  3. VYVANSE [Concomitant]
  4. SEROQUEL [Concomitant]

REACTIONS (1)
  - AGITATION [None]
